FAERS Safety Report 10044044 (Version 2)
Quarter: 2014Q1

REPORT INFORMATION
  Report Type: Spontaneous
  Country: US (occurrence: US)
  Receive Date: 20140328
  Receipt Date: 20140328
  Transmission Date: 20141002
  Serious: No
  Sender: FDA-Public Use
  Company Number: US-MYLANLABS-2013S1020578

PATIENT
  Age: 49 Year
  Sex: Female

DRUGS (2)
  1. EMSAM (SELEGILINE TRANSDERMAL SYSTEM) [Suspect]
     Indication: MAJOR DEPRESSION
     Dosage: CHANGE PATCH DAILY
     Route: 062
     Dates: start: 20130901
  2. LAMOTRIGINE [Concomitant]
     Dates: start: 201208

REACTIONS (5)
  - Blood pressure decreased [Recovering/Resolving]
  - Heart rate increased [Recovering/Resolving]
  - Irritability [Not Recovered/Not Resolved]
  - Anxiety [Recovering/Resolving]
  - Insomnia [Not Recovered/Not Resolved]
